FAERS Safety Report 9135021 (Version 1)
Quarter: 2013Q1

REPORT INFORMATION
  Report Type: Spontaneous
  Country: FR (occurrence: FR)
  Receive Date: 20130304
  Receipt Date: 20130304
  Transmission Date: 20140127
  Serious: Yes (Hospitalization, Other)
  Sender: FDA-Public Use
  Company Number: FR-PFIZER INC-2013070180

PATIENT
  Age: 62 Year
  Sex: Male

DRUGS (22)
  1. NEURONTIN [Suspect]
     Dosage: 2 DF OF 400 MG CAPSULE DAILY
     Route: 048
     Dates: start: 20130130, end: 20130131
  2. LOVENOX [Concomitant]
  3. CARDENSIEL [Concomitant]
     Dosage: UNK
  4. CARDENSIEL [Concomitant]
     Dosage: UNK
     Dates: start: 20130128
  5. ALDACTONE [Concomitant]
  6. ALLOPURINOL [Concomitant]
  7. LEVOTHYROX [Concomitant]
     Dosage: UNK
  8. LEVOTHYROX [Concomitant]
     Dosage: UNK
     Dates: start: 20130127
  9. COUMADINE [Concomitant]
     Dosage: UNK
     Dates: start: 20130128
  10. DIFFU K [Concomitant]
  11. BURINEX [Concomitant]
  12. PERFALGAN [Concomitant]
     Dosage: UNK
     Dates: start: 20130127
  13. VITAMIN K [Concomitant]
     Dosage: UNK
     Dates: start: 20130127
  14. ESOMEPRAZOLE [Concomitant]
     Dosage: UNK
     Dates: start: 20130127
  15. LASILIX [Concomitant]
     Dosage: UNK
     Dates: start: 20130127
  16. ACUPAN [Concomitant]
     Dosage: UNK
     Dates: start: 20130127
  17. TOPALGIC [Concomitant]
     Dosage: UNK
     Dates: start: 20130128
  18. TRAMADOL [Concomitant]
     Dosage: UNK
     Dates: start: 20130128
  19. KAYEXALATE [Concomitant]
     Dosage: UNK
     Dates: start: 20130128
  20. ZOLPIDEM [Concomitant]
     Dosage: UNK
     Dates: start: 20130128
  21. CORDARONE [Concomitant]
     Dosage: UNK
     Dates: start: 20130129
  22. CALCIPARIN [Concomitant]
     Dosage: UNK
     Dates: start: 20130129

REACTIONS (2)
  - Neutropenia [Recovered/Resolved]
  - Leukopenia [Unknown]
